FAERS Safety Report 15795108 (Version 4)
Quarter: 2019Q2

REPORT INFORMATION
  Report Type: Report from Study
  Country: US (occurrence: US)
  Receive Date: 20190107
  Receipt Date: 20190426
  Transmission Date: 20190711
  Serious: Yes (Death, Hospitalization, Other)
  Sender: FDA-Public Use
  Company Number: US-ACTELION-A-US2016-136644

PATIENT
  Age: 62 Year
  Sex: Female

DRUGS (1)
  1. OPSUMIT [Suspect]
     Active Substance: MACITENTAN
     Indication: PULMONARY ARTERIAL HYPERTENSION
     Dosage: 10 MG, QD
     Route: 048
     Dates: start: 20160105, end: 20190217

REACTIONS (21)
  - Pneumonia aspiration [Recovered/Resolved]
  - Orthostatic hypotension [Unknown]
  - General physical health deterioration [Not Recovered/Not Resolved]
  - Bronchitis [Recovered/Resolved]
  - Eating disorder [Recovered/Resolved]
  - Dehydration [Unknown]
  - Gastrostomy [Unknown]
  - Nasal congestion [Recovered/Resolved]
  - Gastrointestinal tube insertion [Not Recovered/Not Resolved]
  - Asthenia [Unknown]
  - Oedema peripheral [Recovered/Resolved]
  - Pyrexia [Recovered/Resolved with Sequelae]
  - Respiratory failure [Fatal]
  - Dysphagia [Recovered/Resolved]
  - Hypoxia [Recovered/Resolved]
  - Malnutrition [Unknown]
  - Pneumonia [Recovered/Resolved with Sequelae]
  - Dyspnoea [Recovered/Resolved]
  - Cough [Recovered/Resolved with Sequelae]
  - Chills [Recovered/Resolved with Sequelae]
  - Concomitant disease progression [Recovered/Resolved]

NARRATIVE: CASE EVENT DATE: 20160120
